FAERS Safety Report 14411513 (Version 1)
Quarter: 2018Q1

REPORT INFORMATION
  Report Type: Spontaneous
  Country: BR (occurrence: BR)
  Receive Date: 20180119
  Receipt Date: 20180119
  Transmission Date: 20180509
  Serious: Yes (Other)
  Sender: FDA-Public Use
  Company Number: BR-PFIZER INC-2018025489

PATIENT
  Age: 76 Year
  Sex: Female

DRUGS (1)
  1. LIPITOR [Suspect]
     Active Substance: ATORVASTATIN CALCIUM
     Dosage: 40 MG, ALTERNATE DAY (HALF OF 1 TABLET IN ALTERNATING DAYS)

REACTIONS (3)
  - Drug prescribing error [Unknown]
  - Product use issue [Unknown]
  - Neoplasm malignant [Unknown]
